FAERS Safety Report 9162982 (Version 1)
Quarter: 2013Q1

REPORT INFORMATION
  Report Type: Spontaneous
  Country: US (occurrence: US)
  Receive Date: 20130314
  Receipt Date: 20130314
  Transmission Date: 20140127
  Serious: Yes (Hospitalization, Other)
  Sender: FDA-Public Use
  Company Number: US-ROCHE-1168358

PATIENT
  Age: 16 Year
  Sex: Male
  Weight: 62.2 kg

DRUGS (4)
  1. ACCUTANE [Suspect]
     Indication: ACNE
     Route: 048
     Dates: start: 19961011
  2. ACCUTANE [Suspect]
     Route: 048
     Dates: start: 19970416, end: 19970423
  3. ACCUTANE [Suspect]
     Route: 048
     Dates: end: 1998
  4. ZOLOFT [Concomitant]
     Indication: MOOD ALTERED

REACTIONS (11)
  - Colitis ulcerative [Unknown]
  - Crohn^s disease [Unknown]
  - Inflammatory bowel disease [Unknown]
  - Intestinal obstruction [Unknown]
  - Pneumonia [Recovering/Resolving]
  - Emotional distress [Unknown]
  - Renal disorder [Unknown]
  - Bone disorder [Unknown]
  - Back pain [Unknown]
  - Alanine aminotransferase increased [Unknown]
  - Aspartate aminotransferase increased [Unknown]
